FAERS Safety Report 7266888-4 (Version None)
Quarter: 2011Q1

REPORT INFORMATION
  Report Type: 
  Country: None (occurrence: None)
  Receive Date: 20110201
  Receipt Date: 20110118
  Transmission Date: 20110831
  Serious: Yes (Hospitalization, Other)
  Sender: FDA-Public Use
  Company Number: US-ELI_LILLY_AND_COMPANY-US201101004046

PATIENT
  Age: 55 Year
  Sex: Male

DRUGS (4)
  1. ZYPREXA [Suspect]
     Indication: BIPOLAR DISORDER
     Dates: start: 20090101
  2. KLONOPIN [Concomitant]
  3. COCAINE [Concomitant]
  4. ZYPREXA [Suspect]
     Dosage: 30 MG, UNK

REACTIONS (3)
  - NEUROLEPTIC MALIGNANT SYNDROME [None]
  - HOSPITALISATION [None]
  - OVERDOSE [None]
